FAERS Safety Report 17635652 (Version 1)
Quarter: 2020Q2

REPORT INFORMATION
  Report Type: Spontaneous
  Country: DE (occurrence: DE)
  Receive Date: 20200407
  Receipt Date: 20200407
  Transmission Date: 20200713
  Serious: Yes (Life-Threatening, Hospitalization, Other)
  Sender: FDA-Public Use
  Company Number: DE-TEVA-2020-DE-1219947

PATIENT
  Age: 69 Year
  Sex: Male
  Weight: 77 kg

DRUGS (13)
  1. CARVEDILOL 25MG [Interacting]
     Active Substance: CARVEDILOL
     Dosage: 50 MILLIGRAM DAILY; 1-0-1
     Dates: start: 201808
  2. SPIRONOLACTON 50MG [Interacting]
     Active Substance: SPIRONOLACTONE
     Dosage: 50 MILLIGRAM DAILY; 1-0-0
     Dates: start: 201808
  3. TORASEMID 10MG [Interacting]
     Active Substance: TORSEMIDE
     Dosage: 10 MILLIGRAM DAILY; 1-0-0
     Dates: start: 201808
  4. ELIQUIS [Interacting]
     Active Substance: APIXABAN
     Indication: ATRIAL FIBRILLATION
     Dosage: 10 MILLIGRAM DAILY; 1-0-1
     Dates: start: 201808
  5. ALLOPURINOL 100 MG [Suspect]
     Active Substance: ALLOPURINOL
     Indication: GOUT
     Dosage: 100 MG
     Dates: start: 201808
  6. MILGAMMA PROTEKT 300MG [Interacting]
     Active Substance: BENFOTIAMINE
     Indication: CARDIOVASCULAR DISORDER
     Dosage: 1
     Dates: start: 201808
  7. AVASTIN [Interacting]
     Active Substance: BEVACIZUMAB
     Indication: DIABETIC RETINAL OEDEMA
     Dosage: INJECT INTO THE RIGHT EYE AT 1.30 P.M.
     Dates: start: 20200115
  8. AMLODIPIN 5MG [Interacting]
     Active Substance: AMLODIPINE BESYLATE
     Indication: HYPERTENSION
     Dosage: 10 MILLIGRAM DAILY; 1-0-1
     Dates: start: 201808
  9. RAMIPRIL 5MG [Interacting]
     Active Substance: RAMIPRIL
     Indication: HYPERTENSION
     Dosage: 10 MILLIGRAM DAILY; 1-0-1
     Dates: start: 201808
  10. SIMVASTATIN 40MG [Interacting]
     Active Substance: SIMVASTATIN
     Dosage: 40 MILLIGRAM DAILY; 0-0-1
     Dates: start: 201808
  11. INSULIN GLARGINE [Interacting]
     Active Substance: INSULIN GLARGINE
     Indication: DIABETES MELLITUS
     Dosage: 15 IE ABENDS
     Dates: start: 201808
  12. PROCORALAN 7.5MG [Interacting]
     Active Substance: IVABRADINE HYDROCHLORIDE
     Dosage: 7.5 MILLIGRAM DAILY; 1-0-0
     Dates: start: 201808
  13. JANUMET [Interacting]
     Active Substance: METFORMIN HYDROCHLORIDE\SITAGLIPTIN PHOSPHATE
     Indication: DIABETES MELLITUS
     Dosage: 2 DOSAGE FORMS DAILY; 1-0-1
     Dates: start: 201808

REACTIONS (5)
  - Seizure [Recovered/Resolved]
  - Drug interaction [Unknown]
  - Movement disorder [Recovered/Resolved]
  - Eye movement disorder [Recovered/Resolved]
  - Off label use [Unknown]

NARRATIVE: CASE EVENT DATE: 20200115
